FAERS Safety Report 8541290-3 (Version None)
Quarter: 2012Q3

REPORT INFORMATION
  Report Type: 
  Country: None (occurrence: None)
  Receive Date: 20120726
  Receipt Date: 20120719
  Transmission Date: 20120928
  Serious: No
  Sender: FDA-Public Use
  Company Number: US-BAYER-2012-073167

PATIENT
  Age: 18 Year
  Sex: Female

DRUGS (1)
  1. BETASERON [Suspect]
     Indication: PRODUCT USED FOR UNKNOWN INDICATION
     Dosage: 2 MIU, QOD
     Route: 058
     Dates: start: 20120717

REACTIONS (3)
  - PYREXIA [None]
  - ASTHENIA [None]
  - FEELING COLD [None]
